FAERS Safety Report 9008752 (Version 1)
Quarter: 2013Q1

REPORT INFORMATION
  Report Type: Spontaneous
  Country: US (occurrence: US)
  Receive Date: 20130111
  Receipt Date: 20130111
  Transmission Date: 20140127
  Serious: No
  Sender: FDA-Public Use
  Company Number: US-ASTRAZENECA-2013SE00938

PATIENT
  Age: 44 Year
  Sex: Female
  Weight: 86.2 kg

DRUGS (6)
  1. NEXIUM [Suspect]
     Indication: HELICOBACTER INFECTION
     Route: 048
     Dates: start: 20130104
  2. OMEPRAZOLE [Suspect]
     Route: 048
     Dates: start: 201211, end: 201211
  3. DEXILANT [Suspect]
     Route: 065
  4. PREVACID [Suspect]
     Route: 065
  5. FERROUS  SULFATE [Concomitant]
     Dates: start: 2012
  6. B12 [Concomitant]
     Dates: start: 2012

REACTIONS (4)
  - Muscle tightness [Not Recovered/Not Resolved]
  - Muscle tightness [Not Recovered/Not Resolved]
  - Muscle tightness [Unknown]
  - Blood magnesium decreased [Unknown]
